FAERS Safety Report 8090757-3 (Version None)
Quarter: 2012Q1

REPORT INFORMATION
  Report Type: 
  Country: None (occurrence: None)
  Receive Date: 20120125
  Receipt Date: 20120112
  Transmission Date: 20120608
  Serious: Yes (Hospitalization)
  Sender: FDA-Public Use
  Company Number: 2012MA000749

PATIENT
  Age: 57 Year
  Sex: Female

DRUGS (14)
  1. MIRTAZAPINE [Suspect]
     Dosage: 45 MG;QD;PO
     Route: 048
  2. DICLOFENAC [Concomitant]
  3. HYDROXOCOBALAMIN [Concomitant]
  4. OXAZEPAM [Suspect]
     Dosage: 30 MG;QD;PO
     Route: 048
  5. BETAPRED [Concomitant]
  6. RANITIDINE [Concomitant]
  7. CETIRIZINE HCL [Concomitant]
  8. MIRTAZAPINE [Suspect]
     Dosage: 45 MG;QD;PO
     Route: 048
  9. LYRICA [Suspect]
     Dosage: 400 MG;QD;PO
     Route: 048
  10. HYDROMORPHONE HYDROCHLORIDE [Suspect]
     Indication: PAIN
     Dosage: IV
     Route: 042
  11. MOVIPREP [Concomitant]
  12. HEPARIN [Concomitant]
  13. ALVEDON FORTE [Concomitant]
  14. CILAXORAL [Concomitant]

REACTIONS (2)
  - SOMNOLENCE [None]
  - MEDICATION ERROR [None]
